FAERS Safety Report 5183651-9 (Version None)
Quarter: 2006Q4

REPORT INFORMATION
  Report Type: 
  Country: None (occurrence: None)
  Receive Date: 20061220
  Receipt Date: 20060126
  Transmission Date: 20070319
  Serious: No
  Sender: FDA-Public Use
  Company Number: US-GLAXOSMITHKLINE-A0591037A

PATIENT
  Age: 24 Year
  Sex: Female

DRUGS (1)
  1. EQUATE NTS 14MG [Suspect]
     Indication: SMOKING CESSATION THERAPY
     Dates: start: 20060124

REACTIONS (1)
  - BLOOD PRESSURE INCREASED [None]
